FAERS Safety Report 4401308-6 (Version None)
Quarter: 2004Q3

REPORT INFORMATION
  Report Type: 
  Country: None (occurrence: None)
  Receive Date: 20040907
  Receipt Date: 20040227
  Transmission Date: 20050211
  Serious: No
  Sender: FDA-Public Use
  Company Number: US-BRISTOL-MYERS SQUIBB COMPANY-12519260

PATIENT
  Age: 63 Year
  Sex: Female
  Weight: 66 kg

DRUGS (5)
  1. COUMADIN [Suspect]
     Indication: AORTIC VALVE REPLACEMENT
     Route: 048
     Dates: start: 19990501
  2. LIPITOR [Concomitant]
  3. ZOCOR [Concomitant]
     Dates: start: 20040101
  4. XANAX [Concomitant]
  5. M-M-R II [Concomitant]
     Dates: start: 20040101, end: 20040101

REACTIONS (1)
  - INTERNATIONAL NORMALISED RATIO DECREASED [None]
